FAERS Safety Report 7931513-3 (Version None)
Quarter: 2011Q4

REPORT INFORMATION
  Report Type: 
  Country: None (occurrence: None)
  Receive Date: 20111121
  Receipt Date: 20111121
  Transmission Date: 20120403
  Serious: Yes (Other)
  Sender: FDA-Public Use
  Company Number: None

PATIENT
  Age: 74 Year
  Sex: Female
  Weight: 71.667 kg

DRUGS (1)
  1. BONIVA [Suspect]
     Indication: OSTEOPENIA
     Dosage: 150 MG
     Route: 048
     Dates: start: 20111111, end: 20111118

REACTIONS (3)
  - PAIN [None]
  - MOVEMENT DISORDER [None]
  - DRUG EFFECT DECREASED [None]
